FAERS Safety Report 5713625-8 (Version None)
Quarter: 2008Q2

REPORT INFORMATION
  Report Type: 
  Country: None (occurrence: None)
  Receive Date: 20080418
  Receipt Date: 20080411
  Transmission Date: 20081010
  Serious: Yes (Hospitalization)
  Sender: FDA-Public Use
  Company Number: 2008SP004717

PATIENT
  Age: 46 Year
  Sex: Male
  Weight: 70 kg

DRUGS (5)
  1. TEMODAL [Suspect]
     Indication: GLIOBLASTOMA MULTIFORME
     Dosage: 340 MG; ; PO
     Route: 048
     Dates: start: 20080117, end: 20080218
  2. DOXORUBICIN HCL [Suspect]
     Indication: GLIOBLASTOMA MULTIFORME
     Dosage: 68 MG; ONCE; IV
     Route: 042
     Dates: start: 20080117, end: 20080214
  3. DEXAMETHASONE [Concomitant]
  4. SIMVASTATIN [Concomitant]
  5. VALPROIC ACID [Concomitant]

REACTIONS (7)
  - FEBRILE NEUTROPENIA [None]
  - HAEMOGLOBIN DECREASED [None]
  - MACROCYTOSIS [None]
  - MEAN PLATELET VOLUME DECREASED [None]
  - PLATELET COUNT INCREASED [None]
  - PNEUMOCYSTIS JIROVECI PNEUMONIA [None]
  - THROMBOCYTOPENIA [None]
